FAERS Safety Report 24831041 (Version 1)
Quarter: 2025Q1

REPORT INFORMATION
  Report Type: Spontaneous
  Country: US (occurrence: US)
  Receive Date: 20250110
  Receipt Date: 20250110
  Transmission Date: 20250408
  Serious: Yes (Death, Hospitalization, Other)
  Sender: BAYER HEALTHCARE LLC
  Company Number: US-BAYER-2025A003172

PATIENT
  Age: 75 Year
  Sex: Male

DRUGS (8)
  1. ASPIRIN [Suspect]
     Active Substance: ASPIRIN
     Route: 061
  2. AMLODIPINE [Suspect]
     Active Substance: AMLODIPINE BESYLATE
  3. METFORMIN [Suspect]
     Active Substance: METFORMIN HYDROCHLORIDE
  4. GLIPIZIDE [Suspect]
     Active Substance: GLIPIZIDE
  5. LISINOPRIL [Suspect]
     Active Substance: LISINOPRIL
  6. PIOGLITAZONE [Suspect]
     Active Substance: PIOGLITAZONE
  7. GABAPENTIN [Suspect]
     Active Substance: GABAPENTIN
  8. ATORVASTATIN [Suspect]
     Active Substance: ATORVASTATIN

REACTIONS (2)
  - Toxicity to various agents [Fatal]
  - Completed suicide [Fatal]
